FAERS Safety Report 5473062-0 (Version None)
Quarter: 2007Q4

REPORT INFORMATION
  Report Type: 
  Country: None (occurrence: None)
  Receive Date: 20071001
  Receipt Date: 20070403
  Transmission Date: 20080405
  Serious: No
  Sender: FDA-Public Use
  Company Number: US-ASTRAZENECA-2007UW04914

PATIENT
  Age: 54 Year
  Sex: Female

DRUGS (9)
  1. ARIMIDEX [Suspect]
     Indication: BREAST CANCER FEMALE
     Route: 048
     Dates: start: 20030101
  2. ADVAIR DISKUS 100/50 [Concomitant]
  3. FLONASE [Concomitant]
  4. CLARITIN [Concomitant]
  5. COREG [Concomitant]
  6. ASPIRIN [Concomitant]
  7. SPIRONOLACTONE [Concomitant]
  8. DIGITEK [Concomitant]
  9. VIACTIV [Concomitant]

REACTIONS (2)
  - CARDIAC DISORDER [None]
  - JOINT STIFFNESS [None]
